FAERS Safety Report 9007781 (Version 1)
Quarter: 2013Q1

REPORT INFORMATION
  Report Type: Spontaneous
  Country: US (occurrence: US)
  Receive Date: 20130111
  Receipt Date: 20130111
  Transmission Date: 20140127
  Serious: Yes (Other)
  Sender: FDA-Public Use
  Company Number: US-009507513-0901USA02173

PATIENT
  Age: 10 Year
  Sex: Male
  Weight: 29.48 kg

DRUGS (3)
  1. SINGULAIR [Suspect]
     Indication: AUTOIMMUNE DISORDER
     Dosage: 1 DF, QD
     Route: 048
     Dates: start: 20080110, end: 20080708
  2. SINGULAIR [Suspect]
     Indication: MULTIPLE ALLERGIES
  3. SINGULAIR [Suspect]
     Indication: INFLAMMATION

REACTIONS (5)
  - Homicidal ideation [Recovering/Resolving]
  - Abnormal behaviour [Recovering/Resolving]
  - Crying [Recovering/Resolving]
  - Mood altered [Recovering/Resolving]
  - Negativism [Recovering/Resolving]
